FAERS Safety Report 20055943 (Version 1)
Quarter: 2021Q4

REPORT INFORMATION
  Report Type: Spontaneous
  Country: ES (occurrence: ES)
  Receive Date: 20211111
  Receipt Date: 20211111
  Transmission Date: 20220303
  Serious: Yes (Other)
  Sender: FDA-Public Use
  Company Number: ES-CHEPLA-C20215280

PATIENT
  Age: 44 Year
  Sex: Male

DRUGS (3)
  1. VALGANCICLOVIR [Suspect]
     Active Substance: VALGANCICLOVIR
     Indication: Prophylaxis
     Dosage: UNK
     Route: 065
  2. GANCICLOVIR [Suspect]
     Active Substance: GANCICLOVIR
     Indication: Cytomegalovirus infection
     Dosage: UNK
     Route: 042
  3. HUMAN IMMUNOGLOBULIN G [Suspect]
     Active Substance: HUMAN IMMUNOGLOBULIN G
     Indication: Cytomegalovirus infection
     Dosage: UNK, 100 PAUL EHRLICH INSTITUTE UNITS/ML IN 100 ML/WEEK, (TOTAL OF 4 DOSES) (2 MONTHS)
     Route: 042

REACTIONS (3)
  - Viral load increased [Recovered/Resolved]
  - Cytomegalovirus infection [Recovering/Resolving]
  - Condition aggravated [Recovering/Resolving]
